FAERS Safety Report 15939412 (Version 1)
Quarter: 2019Q1

REPORT INFORMATION
  Report Type: Spontaneous
  Country: FR (occurrence: FR)
  Receive Date: 20190208
  Receipt Date: 20190208
  Transmission Date: 20190417
  Serious: Yes (Other)
  Sender: FDA-Public Use
  Company Number: IND-FR-009507513-1901FRA011669

PATIENT
  Age: 85 Year
  Sex: Female
  Weight: 55 kg

DRUGS (5)
  1. ESMERON [Suspect]
     Active Substance: ROCURONIUM BROMIDE
     Indication: INDUCTION OF ANAESTHESIA
     Dosage: (STRENGTH 50MG/5ML) 50 MILLIGRAM, ONCE (TOTAL)
     Route: 042
     Dates: start: 20190108, end: 20190108
  2. SUFENTANIL [Suspect]
     Active Substance: SUFENTANIL
     Indication: INDUCTION OF ANAESTHESIA
     Dosage: 20 MICROGRAM, QD
     Route: 042
     Dates: start: 20190108, end: 20190108
  3. HUMIRA [Concomitant]
     Active Substance: ADALIMUMAB
  4. KETAMINE [Suspect]
     Active Substance: KETAMINE
     Indication: INDUCTION OF ANAESTHESIA
     Dosage: 20 MILLIGRAM, ONCE (TOTAL)
     Route: 042
     Dates: start: 20190108, end: 20190108
  5. PROPOFOL. [Suspect]
     Active Substance: PROPOFOL
     Indication: INDUCTION OF ANAESTHESIA
     Dosage: 200 MILLIGRAM, ONCE (TOTAL)
     Route: 042
     Dates: start: 20190108, end: 20190108

REACTIONS (2)
  - Urticaria [Recovered/Resolved]
  - Rash erythematous [Recovered/Resolved]

NARRATIVE: CASE EVENT DATE: 20190108
